FAERS Safety Report 8821674 (Version 1)
Quarter: 2012Q4

REPORT INFORMATION
  Report Type: 
  Country: US (occurrence: US)
  Receive Date: 20121002
  Receipt Date: 20121002
  Transmission Date: 20130627
  Serious: No
  Sender: FDA-Public Use
  Company Number: US-VERTEX PHARMACEUTICAL INC.-2012-020603

PATIENT
  Age: 57 Year
  Sex: Male

DRUGS (5)
  1. VX-950 [Suspect]
     Indication: HEPATITIS C
     Dosage: 750 mg, tid
     Route: 048
     Dates: start: 20120611
  2. ISENTRESS [Concomitant]
     Dosage: 400 mg, UNK
  3. ENALAPRIL [Concomitant]
     Dosage: 20 mg, UNK
  4. PROPRANOLOL ER [Concomitant]
     Dosage: 60 mg, UNK
  5. TRUVADA [Concomitant]

REACTIONS (2)
  - Off label use [Unknown]
  - Pruritus [Unknown]
